FAERS Safety Report 14243533 (Version 1)
Quarter: 2017Q4

REPORT INFORMATION
  Report Type: Spontaneous
  Country: US (occurrence: None)
  Receive Date: 20171130
  Receipt Date: 20171130
  Transmission Date: 20180321
  Serious: No
  Sender: FDA-Public Use
  Company Number: None

PATIENT
  Sex: Male

DRUGS (1)
  1. SUTENT [Suspect]
     Active Substance: SUNITINIB MALATE
     Indication: RENAL CANCER
     Dosage: 50 MG DAILY FOR 14 DAYS OF A 21 DAY CYCLE PO
     Route: 048
     Dates: start: 20170831

REACTIONS (2)
  - Tenderness [None]
  - Oral pain [None]
